FAERS Safety Report 24961283 (Version 1)
Quarter: 2025Q1

REPORT INFORMATION
  Report Type: Spontaneous
  Country: US (occurrence: None)
  Receive Date: 20250212
  Receipt Date: 20250212
  Transmission Date: 20250409
  Serious: Yes (Hospitalization)
  Sender: FDA-CTU
  Company Number: None

PATIENT
  Sex: Male

DRUGS (7)
  1. AMBRISENTAN [Suspect]
     Active Substance: AMBRISENTAN
     Indication: Pulmonary arterial hypertension
     Dosage: FREQUENCY : DAILY;?
     Route: 048
  2. POTASSIUM [Concomitant]
     Active Substance: POTASSIUM
  3. TORSEMIDE [Concomitant]
     Active Substance: TORSEMIDE
  4. SILDENAFIL [Concomitant]
     Active Substance: SILDENAFIL
  5. ATORVASTATIN CALCIUM [Concomitant]
     Active Substance: ATORVASTATIN CALCIUM
  6. UPTRAVI [Concomitant]
     Active Substance: SELEXIPAG
  7. VALSARTAN [Concomitant]
     Active Substance: VALSARTAN

REACTIONS (1)
  - Hospitalisation [None]
